FAERS Safety Report 7355977-1 (Version None)
Quarter: 2011Q1

REPORT INFORMATION
  Report Type: 
  Country: None (occurrence: None)
  Receive Date: 20110316
  Receipt Date: 20110203
  Transmission Date: 20110831
  Serious: No
  Sender: FDA-Public Use
  Company Number: US-ABBOTT-11P-163-0703018-00

PATIENT
  Sex: Female

DRUGS (9)
  1. MULTI-VITAMIN [Concomitant]
     Indication: VITAMIN SUPPLEMENTATION
  2. UNKNOWN CHOLESTEROL DRUG [Concomitant]
     Indication: BLOOD CHOLESTEROL INCREASED
  3. MIRAPEX [Concomitant]
     Indication: RESTLESS LEGS SYNDROME
  4. ASMANEX TWISTHALER [Concomitant]
     Indication: PRODUCT USED FOR UNKNOWN INDICATION
  5. UNKNOWN DIABETES DRUG [Concomitant]
     Indication: DIABETES MELLITUS
  6. UNKNOWN DEPRESSION MEDICATION [Concomitant]
     Indication: DEPRESSION
  7. TRILIPIX [Suspect]
     Indication: PRODUCT USED FOR UNKNOWN INDICATION
  8. UNKNOWN BETA BLOCKER [Concomitant]
     Indication: PRODUCT USED FOR UNKNOWN INDICATION
  9. LASIX [Concomitant]
     Indication: CARDIAC FAILURE CONGESTIVE

REACTIONS (1)
  - SWELLING FACE [None]
